FAERS Safety Report 25185979 (Version 1)
Quarter: 2025Q2

REPORT INFORMATION
  Report Type: Spontaneous
  Country: BE (occurrence: BE)
  Receive Date: 20250410
  Receipt Date: 20250410
  Transmission Date: 20250717
  Serious: Yes (Hospitalization)
  Sender: NOVARTIS
  Company Number: None

PATIENT
  Age: 88 Year
  Sex: Male

DRUGS (10)
  1. ENTRESTO [Suspect]
     Active Substance: SACUBITRIL\VALSARTAN
     Indication: Product used for unknown indication
     Dosage: 2 DOSAGE FORM, QD (PER OS)
     Route: 065
  2. JARDIANCE [Suspect]
     Active Substance: EMPAGLIFLOZIN
     Indication: Heart failure with reduced ejection fraction
     Dosage: 1 DOSAGE FORM, QD
     Route: 048
     Dates: start: 20250203
  3. BUMETANIDE [Suspect]
     Active Substance: BUMETANIDE
     Indication: Product used for unknown indication
     Dosage: 1 DOSAGE FORM, QD (PER OS)
     Route: 065
  4. ALDACTONE [Concomitant]
     Active Substance: SPIRONOLACTONE
     Indication: Product used for unknown indication
     Dosage: 1 DOSAGE FORM, QD (PER OS)
     Route: 065
  5. ASPIRIN [Concomitant]
     Active Substance: ASPIRIN
     Indication: Product used for unknown indication
     Dosage: 1 DOSAGE FORM, QD (PER OS)
     Route: 065
  6. BISOPROLOL [Concomitant]
     Active Substance: BISOPROLOL
     Indication: Product used for unknown indication
     Dosage: 1 DOSAGE FORM, QD
     Route: 065
  7. ESCITALOPRAM [Concomitant]
     Active Substance: ESCITALOPRAM OXALATE
     Indication: Product used for unknown indication
     Dosage: 1 DOSAGE FORM, QD (PER OS)
     Route: 065
  8. PANTOPRAZOLE [Concomitant]
     Active Substance: PANTOPRAZOLE
     Indication: Product used for unknown indication
     Dosage: 1 DOSAGE FORM, QD (PER OS)
     Route: 065
  9. ROSUVASTATIN [Concomitant]
     Active Substance: ROSUVASTATIN
     Indication: Product used for unknown indication
     Dosage: 1 DOSAGE FORM, QD (PER OS)
     Route: 065
  10. TOVIAZ [Concomitant]
     Active Substance: FESOTERODINE FUMARATE
     Indication: Product used for unknown indication
     Dosage: 1 DOSAGE FORM, QD (PER OS)
     Route: 065

REACTIONS (6)
  - Hypovolaemia [Recovering/Resolving]
  - Dehydration [Recovering/Resolving]
  - Hyponatraemia [Recovering/Resolving]
  - Vomiting [Recovering/Resolving]
  - Acute kidney injury [Recovering/Resolving]
  - Labelled drug-drug interaction issue [Recovering/Resolving]

NARRATIVE: CASE EVENT DATE: 20250318
